FAERS Safety Report 7672465-3 (Version None)
Quarter: 2011Q3

REPORT INFORMATION
  Report Type: 
  Country: None (occurrence: None)
  Receive Date: 20110809
  Receipt Date: 20110727
  Transmission Date: 20111222
  Serious: Yes (Other)
  Sender: FDA-Public Use
  Company Number: US-JNJFOC-20110712087

PATIENT
  Age: 53 Year
  Sex: Male
  Weight: 140.62 kg

DRUGS (1)
  1. BENGAY ULTRA STRENGTH PATCH [Suspect]
     Indication: PRODUCT USED FOR UNKNOWN INDICATION
     Route: 061
     Dates: start: 20110722, end: 20110722

REACTIONS (1)
  - BURNS SECOND DEGREE [None]
